FAERS Safety Report 18196516 (Version 1)
Quarter: 2020Q3

REPORT INFORMATION
  Report Type: Other
  Country: CN (occurrence: CN)
  Receive Date: 20200826
  Receipt Date: 20200826
  Transmission Date: 20201103
  Serious: Yes (Other)
  Sender: FDA-Public Use
  Company Number: CN-ROCHE-2663251

PATIENT

DRUGS (2)
  1. OXALIPLATIN. [Suspect]
     Active Substance: OXALIPLATIN
     Indication: COLORECTAL CANCER
     Route: 041
  2. CAPECITABINE. [Suspect]
     Active Substance: CAPECITABINE
     Indication: COLORECTAL CANCER
     Dosage: DAY1?14
     Route: 048

REACTIONS (10)
  - Renal impairment [Unknown]
  - Nausea [Unknown]
  - Haemoglobin decreased [Unknown]
  - Mucosal disorder [Unknown]
  - Palmar-plantar erythrodysaesthesia syndrome [Unknown]
  - Diarrhoea [Unknown]
  - White blood cell count decreased [Unknown]
  - Hepatic function abnormal [Unknown]
  - Vomiting [Unknown]
  - Platelet count decreased [Unknown]
